FAERS Safety Report 5981431-5 (Version None)
Quarter: 2008Q4

REPORT INFORMATION
  Report Type: 
  Country: None (occurrence: None)
  Receive Date: 20081205
  Receipt Date: 20081124
  Transmission Date: 20090506
  Serious: Yes (Other)
  Sender: FDA-Public Use
  Company Number: US-GILEAD-2008-0019164

PATIENT
  Age: 47 Year
  Sex: Female

DRUGS (2)
  1. TRUVADA [Suspect]
  2. LOPINAVIR AND RITONAVIR [Suspect]

REACTIONS (3)
  - CHEST PAIN [None]
  - OSTEOPENIA [None]
  - PATHOLOGICAL FRACTURE [None]
